FAERS Safety Report 20663800 (Version 2)
Quarter: 2022Q3

REPORT INFORMATION
  Report Type: Spontaneous
  Country: CA (occurrence: CA)
  Receive Date: 20220401
  Receipt Date: 20220712
  Transmission Date: 20221026
  Serious: Yes (Death, Hospitalization, Other)
  Sender: FDA-Public Use
  Company Number: CA-GLAXOSMITHKLINE-CA2022GSK058403

PATIENT

DRUGS (3)
  1. ZANTAC [Suspect]
     Active Substance: RANITIDINE HYDROCHLORIDE
     Indication: Gastrooesophageal reflux disease
     Dosage: UNK, QD
     Route: 065
     Dates: start: 1990, end: 2016
  2. ZANTAC [Suspect]
     Active Substance: RANITIDINE HYDROCHLORIDE
     Indication: Dyspepsia
  3. ZANTAC [Suspect]
     Active Substance: RANITIDINE HYDROCHLORIDE
     Indication: Gastrooesophageal reflux disease
     Dosage: 150 MG, BID
     Route: 048
     Dates: start: 20160725, end: 20160728

REACTIONS (20)
  - Death [Fatal]
  - Pneumonia [Unknown]
  - Small cell lung cancer [Unknown]
  - Metastases to liver [Unknown]
  - Metastases to adrenals [Unknown]
  - Hypoventilation [Unknown]
  - Lung neoplasm malignant [Unknown]
  - Metastatic neoplasm [Unknown]
  - Adrenal mass [Unknown]
  - Dyspnoea [Unknown]
  - Hepatic mass [Unknown]
  - Liver disorder [Unknown]
  - Adrenomegaly [Unknown]
  - Hepatomegaly [Unknown]
  - Pneumonitis [Unknown]
  - Bronchial wall thickening [Unknown]
  - Chronic obstructive pulmonary disease [Unknown]
  - Pulmonary mass [Unknown]
  - Lung infiltration [Unknown]
  - Bronchiectasis [Unknown]
